FAERS Safety Report 5755387-4 (Version None)
Quarter: 2008Q2

REPORT INFORMATION
  Report Type: 
  Country: None (occurrence: None)
  Receive Date: 20080602
  Receipt Date: 20080527
  Transmission Date: 20081010
  Serious: Yes (Hospitalization)
  Sender: FDA-Public Use
  Company Number: US-ROCHE-562846

PATIENT
  Sex: Female
  Weight: 80 kg

DRUGS (10)
  1. XELODA [Suspect]
     Indication: COLORECTAL CANCER
     Route: 065
     Dates: start: 20080324, end: 20080414
  2. ELOXATIN [Suspect]
     Indication: RECTAL CANCER
     Route: 042
     Dates: start: 20080324, end: 20080414
  3. LEVOTHYROXINE SODIUM [Concomitant]
     Route: 048
  4. PROCHLORPERAZINE [Concomitant]
     Dosage: 10 MG EVERY 4 HOURS AS NEEDED FOR NAUSEA AND VOMITING
  5. XANAX [Concomitant]
     Indication: ANXIETY
     Dosage: 0.5 MG EVERY 6 HOURS AS NEEDED
     Route: 048
  6. ACID FOLIC [Concomitant]
     Route: 048
  7. VITAMIN B [Concomitant]
     Route: 048
  8. IMODIUM [Concomitant]
     Route: 048
  9. TYLENOL [Concomitant]
     Indication: PAIN
     Dosage: 500 MG EVERY 4 TO 6 HOURS AS NEEDED
  10. DIURETIC [Concomitant]

REACTIONS (22)
  - ABDOMINAL PAIN [None]
  - ACUTE MYOCARDIAL INFARCTION [None]
  - ANOREXIA [None]
  - ASTHENIA [None]
  - ATELECTASIS [None]
  - BLOOD PRESSURE INCREASED [None]
  - CARDIAC FAILURE CONGESTIVE [None]
  - DEHYDRATION [None]
  - DIARRHOEA [None]
  - DISORIENTATION [None]
  - DIZZINESS [None]
  - EMPHYSEMA [None]
  - HYPOTENSION [None]
  - HYPOXIA [None]
  - NAUSEA [None]
  - PNEUMONIA ASPIRATION [None]
  - RENAL FAILURE ACUTE [None]
  - SOMNOLENCE [None]
  - SYNCOPE [None]
  - THROMBOCYTOPENIA [None]
  - URINARY TRACT INFECTION [None]
  - VOMITING [None]
